FAERS Safety Report 5993893-8 (Version None)
Quarter: 2008Q4

REPORT INFORMATION
  Report Type: 
  Country: None (occurrence: None)
  Receive Date: 20081212
  Receipt Date: 20081118
  Transmission Date: 20090506
  Serious: No
  Sender: FDA-Public Use
  Company Number: US-ABBOTT-08P-163-0464272-00

PATIENT
  Sex: Female
  Weight: 66.284 kg

DRUGS (20)
  1. HUMIRA [Suspect]
     Indication: CROHN'S DISEASE
     Route: 058
     Dates: start: 20080201, end: 20080801
  2. HUMIRA [Suspect]
     Indication: LIGAMENT SPRAIN
  3. HUMIRA [Suspect]
     Indication: ARTHRITIS
  4. HUMIRA [Suspect]
     Indication: ARTHRITIS ENTEROPATHIC
  5. TRIAMCINOLONE ACETONIDE [Suspect]
     Indication: ARTHRALGIA
     Route: 050
     Dates: end: 20080801
  6. MESALAMINE [Concomitant]
     Indication: CROHN'S DISEASE
     Dosage: 8 PILLS X 250 MG
     Route: 048
     Dates: start: 20071001, end: 20080801
  7. CALCIUM [Concomitant]
     Indication: MINERAL SUPPLEMENTATION
     Route: 048
     Dates: end: 20080801
  8. VIGRAN [Concomitant]
     Indication: VITAMIN SUPPLEMENTATION
     Route: 048
     Dates: end: 20080801
  9. ESCITALOPRAM OXALATE [Concomitant]
     Indication: DEPRESSION
     Route: 048
     Dates: start: 20071201, end: 20080801
  10. CLONAZEPAM [Concomitant]
     Indication: INSOMNIA
     Dosage: 20MG DAILY AT BEDTIME
     Route: 048
     Dates: start: 20071201
  11. CLONAZEPAM [Concomitant]
     Indication: ANXIETY
  12. DEXTROPROPOXYPHENE HYDROCHLORIDE [Concomitant]
     Indication: PAIN
     Dosage: 4-6 PILLS AS REQUIRED
     Route: 048
     Dates: start: 20071001, end: 20080801
  13. LEVONORGESTREL [Concomitant]
     Indication: DRUG USE FOR UNKNOWN INDICATION
     Dosage: DAILY
     Dates: end: 20080801
  14. LACTOBACILLUS ACIDOPHILUS [Concomitant]
     Indication: CROHN'S DISEASE
     Dosage: 2 BILLION CFU PER DAY
     Route: 048
     Dates: end: 20080801
  15. CIFAXIN [Concomitant]
     Indication: GASTRIC DISORDER
     Dates: end: 20080801
  16. ZEGARID [Concomitant]
     Indication: CROHN'S DISEASE
     Dates: end: 20080801
  17. OTHER UNKNOWN MEDICATIONS [Concomitant]
     Indication: CROHN'S DISEASE
     Dates: end: 20080801
  18. ZIFAXIN [Concomitant]
     Indication: CROHN'S DISEASE
     Route: 048
     Dates: start: 20071001
  19. ROBENOL FORTE [Concomitant]
     Indication: CROHN'S DISEASE
     Route: 048
     Dates: end: 20080801
  20. GLUTAMIC ACID [Concomitant]
     Indication: ARTHROPATHY
     Route: 048
     Dates: start: 20080201, end: 20080801

REACTIONS (22)
  - ALOPECIA [None]
  - ANOREXIA [None]
  - ASTHENIA [None]
  - CONTUSION [None]
  - DIZZINESS [None]
  - DRUG INEFFECTIVE [None]
  - DRUG INTERACTION [None]
  - ERYTHEMA [None]
  - FEELING ABNORMAL [None]
  - GAIT DISTURBANCE [None]
  - HAEMOGLOBIN INCREASED [None]
  - HEART RATE INCREASED [None]
  - HOT FLUSH [None]
  - HYPERTENSION [None]
  - INFLUENZA LIKE ILLNESS [None]
  - NAUSEA [None]
  - OROPHARYNGEAL PAIN [None]
  - PAIN IN EXTREMITY [None]
  - PHARYNGITIS [None]
  - SENSATION OF HEAVINESS [None]
  - SINUSITIS [None]
  - VISUAL ACUITY REDUCED [None]
